FAERS Safety Report 11689278 (Version 2)
Quarter: 2015Q4

REPORT INFORMATION
  Report Type: Spontaneous
  Country: US (occurrence: US)
  Receive Date: 20151102
  Receipt Date: 20151105
  Transmission Date: 20160304
  Serious: No
  Sender: FDA-Public Use
  Company Number: PHEH2015US021723

PATIENT
  Age: 45 Year
  Sex: Female

DRUGS (5)
  1. NEFAZODONE [Concomitant]
     Active Substance: NEFAZODONE
     Route: 065
  2. GILENYA [Suspect]
     Active Substance: FINGOLIMOD HYDROCHLORIDE
     Indication: MULTIPLE SCLEROSIS
     Dosage: 0.5 MG, QD
     Route: 048
     Dates: start: 20130618
  3. MODAFINIL. [Concomitant]
     Active Substance: MODAFINIL
     Route: 065
  4. AZITHROMYCIN [Concomitant]
     Active Substance: AZITHROMYCIN ANHYDROUS
  5. MELATONIN [Concomitant]
     Active Substance: MELATONIN
     Route: 065

REACTIONS (2)
  - Memory impairment [Unknown]
  - Drug dose omission [Unknown]

NARRATIVE: CASE EVENT DATE: 20150918
